FAERS Safety Report 21322988 (Version 1)
Quarter: 2022Q3

REPORT INFORMATION
  Report Type: Spontaneous
  Country: US (occurrence: None)
  Receive Date: 20220909
  Receipt Date: 20220909
  Transmission Date: 20221027
  Serious: Yes (Disabling)
  Sender: FDA-Public Use
  Company Number: None

PATIENT
  Age: 48 Year
  Sex: Female
  Weight: 56.25 kg

DRUGS (8)
  1. SUBOXONE [Suspect]
     Active Substance: BUPRENORPHINE HYDROCHLORIDE\NALOXONE HYDROCHLORIDE
     Indication: Drug dependence
  2. SUBOXONE [Concomitant]
     Active Substance: BUPRENORPHINE HYDROCHLORIDE\NALOXONE HYDROCHLORIDE
  3. CLONAZEPAM [Concomitant]
     Active Substance: CLONAZEPAM
  4. PROZAC [Concomitant]
     Active Substance: FLUOXETINE HYDROCHLORIDE
  5. ADDERALL [Concomitant]
     Active Substance: AMPHETAMINE ASPARTATE\AMPHETAMINE SULFATE\DEXTROAMPHETAMINE SACCHARATE\DEXTROAMPHETAMINE SULFATE
  6. MELATONIN [Concomitant]
     Active Substance: MELATONIN
  7. MELATONIN [Concomitant]
     Active Substance: MELATONIN
  8. VITAMINS [Concomitant]
     Active Substance: VITAMINS

REACTIONS (4)
  - Tooth fracture [None]
  - Tooth disorder [None]
  - Gingival disorder [None]
  - Dental caries [None]

NARRATIVE: CASE EVENT DATE: 20200615
